FAERS Safety Report 23262895 (Version 6)
Quarter: 2025Q3

REPORT INFORMATION
  Report Type: Report from Study
  Country: US (occurrence: US)
  Receive Date: 20231205
  Receipt Date: 20250816
  Transmission Date: 20251020
  Serious: No
  Sender: ALEXION PHARMACEUTICALS
  Company Number: US-AstraZeneca-CH-00522605A

PATIENT
  Age: 78 Year
  Sex: Male

DRUGS (2)
  1. SOLIRIS [Suspect]
     Active Substance: ECULIZUMAB
     Indication: Neuromyelitis optica spectrum disorder
  2. SOLIRIS [Suspect]
     Active Substance: ECULIZUMAB
     Dates: start: 20240116, end: 20240116

REACTIONS (11)
  - Balance disorder [Unknown]
  - Pain [Unknown]
  - Product dose omission issue [Unknown]
  - Pain in extremity [Unknown]
  - Back pain [Unknown]
  - Vision blurred [Unknown]
  - Erythema [Recovering/Resolving]
  - Hyperhidrosis [Recovering/Resolving]
  - Lip erythema [Recovering/Resolving]
  - Scan abdomen abnormal [Unknown]
  - Laboratory test abnormal [Unknown]

NARRATIVE: CASE EVENT DATE: 20231222
